FAERS Safety Report 5973017-3 (Version None)
Quarter: 2008Q4

REPORT INFORMATION
  Report Type: 
  Country: None (occurrence: None)
  Receive Date: 20081201
  Receipt Date: 20081127
  Transmission Date: 20090506
  Serious: Yes (Death)
  Sender: FDA-Public Use
  Company Number: JP-BAYER-200812860BYL

PATIENT
  Age: 75 Year
  Sex: Male

DRUGS (7)
  1. NEXAVAR [Suspect]
     Indication: RENAL CELL CARCINOMA STAGE IV
     Dosage: TOTAL DAILY DOSE: 800 MG  UNIT DOSE: 200 MG
     Route: 048
     Dates: start: 20081020, end: 20081111
  2. MOBIC [Concomitant]
     Route: 048
     Dates: start: 20080820, end: 20081111
  3. PURSENNID [Concomitant]
     Route: 048
     Dates: start: 20080801, end: 20081111
  4. MAGMITT [Concomitant]
     Route: 048
     Dates: start: 20080820, end: 20081111
  5. OXYCONTIN [Concomitant]
     Route: 048
     Dates: start: 20081024, end: 20081111
  6. NOVAMIN [Concomitant]
     Route: 048
     Dates: start: 20081024, end: 20081111
  7. ZOMETA [Concomitant]
     Route: 042
     Dates: start: 20080815, end: 20081111

REACTIONS (3)
  - HYPERTENSION [None]
  - PALMAR-PLANTAR ERYTHRODYSAESTHESIA SYNDROME [None]
  - SUDDEN DEATH [None]
